FAERS Safety Report 6690331-7 (Version None)
Quarter: 2010Q2

REPORT INFORMATION
  Report Type: 
  Country: None (occurrence: None)
  Receive Date: 20100413
  Receipt Date: 20100111
  Transmission Date: 20101027
  Serious: Yes (Death)
  Sender: FDA-Public Use
  Company Number: 005712

PATIENT
  Age: 57 Year
  Sex: Female

DRUGS (7)
  1. METHYLPHENIDATE [Suspect]
  2. DILTIAZEM HCL [Suspect]
  3. LORAZEPAM [Suspect]
  4. DULOXETINE HYDROCHLORIDE [Concomitant]
  5. ZOLPIDEM [Concomitant]
  6. CELECOXIB [Concomitant]
  7. WARFARIN SODIUM [Concomitant]

REACTIONS (1)
  - COMPLETED SUICIDE [None]
